FAERS Safety Report 25652347 (Version 1)
Quarter: 2025Q3

REPORT INFORMATION
  Report Type: Spontaneous
  Country: CN (occurrence: CN)
  Receive Date: 20250807
  Receipt Date: 20250807
  Transmission Date: 20251020
  Serious: Yes (Other)
  Sender: EXELA PHARMA SCIENCES
  Company Number: CN-EXELAPHARMA-2025EXLA00138

PATIENT
  Age: 49 Year
  Sex: Male

DRUGS (15)
  1. GANCICLOVIR [Suspect]
     Active Substance: GANCICLOVIR
     Indication: Cytomegalovirus infection
     Dates: start: 20220301
  2. GANCICLOVIR [Suspect]
     Active Substance: GANCICLOVIR
     Indication: Encephalitis
  3. BICTEGRAVIR SODIUM [Concomitant]
     Active Substance: BICTEGRAVIR SODIUM
     Route: 048
  4. EMTRICITABINE [Concomitant]
     Active Substance: EMTRICITABINE
     Route: 048
  5. FOSCARNET [Concomitant]
     Active Substance: FOSCARNET
  6. TENOFOVIR ALAFENAMIDE [Concomitant]
     Active Substance: TENOFOVIR ALAFENAMIDE
     Route: 048
  7. DOLUTEGRAVIR [Concomitant]
     Active Substance: DOLUTEGRAVIR
     Route: 048
  8. METHYLPREDNISOLONE [Concomitant]
     Active Substance: METHYLPREDNISOLONE
     Indication: Chronic inflammatory demyelinating polyradiculoneuropathy
  9. METHYLPREDNISOLONE [Concomitant]
     Active Substance: METHYLPREDNISOLONE
  10. METHYLPREDNISOLONE [Concomitant]
     Active Substance: METHYLPREDNISOLONE
  11. HYDROCORTISONE [Concomitant]
     Active Substance: HYDROCORTISONE
  12. HYDROCORTISONE [Concomitant]
     Active Substance: HYDROCORTISONE
  13. HYDROCORTISONE [Concomitant]
     Active Substance: HYDROCORTISONE
  14. HYDROCORTISONE [Concomitant]
     Active Substance: HYDROCORTISONE
  15. HUMAN IMMUNOGLOBULIN G [Concomitant]
     Active Substance: HUMAN IMMUNOGLOBULIN G
     Indication: Chronic inflammatory demyelinating polyradiculoneuropathy

REACTIONS (6)
  - Therapeutic product effect incomplete [Unknown]
  - Drug resistance [Unknown]
  - Ataxia [Unknown]
  - Disorientation [Unknown]
  - Headache [Unknown]
  - Muscular weakness [Recovered/Resolved]
